FAERS Safety Report 10019225 (Version 1)
Quarter: 2014Q1

REPORT INFORMATION
  Report Type: Spontaneous
  Country: US (occurrence: US)
  Receive Date: 20140318
  Receipt Date: 20140318
  Transmission Date: 20141002
  Serious: Yes (Hospitalization)
  Sender: FDA-Public Use
  Company Number: US-BAYER-2014-040076

PATIENT
  Age: 33 Year
  Sex: Female

DRUGS (6)
  1. YAZ [Suspect]
  2. GIANVI [Suspect]
  3. OXYCODONE W/PARACETAMOL [Concomitant]
     Dosage: 5-325
     Dates: start: 20110512
  4. IBUPROFEN [Concomitant]
     Dosage: 600 MG, UNK
     Dates: start: 20110512
  5. CIPROFLOXACIN HCL [Concomitant]
     Dosage: 500 MG, UNK
     Dates: start: 20110527
  6. NITROFURANTOIN [Concomitant]
     Dosage: 100 MG, UNK
     Dates: start: 20110610

REACTIONS (2)
  - Deep vein thrombosis [None]
  - Pulmonary embolism [None]
